FAERS Safety Report 4620677-5 (Version None)
Quarter: 2005Q1

REPORT INFORMATION
  Report Type: 
  Country: None (occurrence: None)
  Receive Date: 20050325
  Receipt Date: 20050322
  Transmission Date: 20050727
  Serious: Yes (Life-Threatening, Hospitalization, Disabling)
  Sender: FDA-Public Use
  Company Number: HQWYE738701MAR05

PATIENT
  Age: 40 Year
  Sex: Female
  Weight: 84 kg

DRUGS (8)
  1. RAPAMUNE [Suspect]
     Indication: RENAL TRANSPLANT
     Dosage: 4 MG 1X PER 1 DAY, ORAL
     Route: 048
     Dates: start: 20050118, end: 20050208
  2. CELLCEPT [Concomitant]
  3. PREDNISONE [Concomitant]
  4. ANTIHYPERTENSIVES (ANTIHYPERTENSIVES) [Concomitant]
  5. BACTRIM [Concomitant]
  6. NYSTATIN [Concomitant]
  7. RANITIDINE [Concomitant]
  8. LIPITOR [Concomitant]

REACTIONS (11)
  - ANAEMIA [None]
  - BLOOD BICARBONATE DECREASED [None]
  - CYTOMEGALOVIRUS INFECTION [None]
  - HAEMOLYSIS [None]
  - KIDNEY TRANSPLANT REJECTION [None]
  - LUNG INFILTRATION [None]
  - RENAL FAILURE ACUTE [None]
  - RENAL TRANSPLANT [None]
  - RENAL TUBULAR NECROSIS [None]
  - THROMBOTIC MICROANGIOPATHY [None]
  - THROMBOTIC THROMBOCYTOPENIC PURPURA [None]
